FAERS Safety Report 9218005 (Version 2)
Quarter: 2013Q2

REPORT INFORMATION
  Report Type: Report from Study
  Country: US (occurrence: US)
  Receive Date: 20130408
  Receipt Date: 20130510
  Transmission Date: 20140414
  Serious: Yes (Hospitalization)
  Sender: FDA-Public Use
  Company Number: US-ROCHE-1211267

PATIENT
  Age: 56 Year
  Sex: Male
  Weight: 78 kg

DRUGS (5)
  1. TRASTUZUMAB [Suspect]
     Indication: OESOPHAGEAL ADENOCARCINOMA
     Dosage: LAST DOSE PRIOR TO SAE: 20/MAR/2013
     Route: 042
     Dates: start: 20130213
  2. TRASTUZUMAB [Suspect]
     Dosage: OVER 30-60 MINUTES
     Route: 042
  3. TRASTUZUMAB [Suspect]
     Dosage: OVER 30-90 MINUTES
     Route: 042
  4. PACLITAXEL [Suspect]
     Indication: OESOPHAGEAL ADENOCARCINOMA
     Dosage: OVER 1 HOUR, LAST DOSE PRIOR TO SAE: 20/MAR/2013
     Route: 042
  5. CARBOPLATIN [Suspect]
     Indication: OESOPHAGEAL ADENOCARCINOMA
     Dosage: AUC=2 OVER 1 HOUR, LAST DOSE PRIOR TO SAE: 20/MAR/2013
     Route: 042

REACTIONS (7)
  - Oesophageal haemorrhage [Recovered/Resolved]
  - Convulsion [Recovered/Resolved]
  - Embolism [Recovered/Resolved]
  - Epistaxis [Recovered/Resolved]
  - Medical device complication [Recovered/Resolved]
  - Skin infection [Recovered/Resolved]
  - Febrile neutropenia [Recovered/Resolved]
